FAERS Safety Report 15879501 (Version 1)
Quarter: 2019Q1

REPORT INFORMATION
  Report Type: Spontaneous
  Country: US (occurrence: US)
  Receive Date: 20190127
  Receipt Date: 20190127
  Transmission Date: 20190417
  Serious: Yes (Other)
  Sender: FDA-Public Use
  Company Number: None

PATIENT
  Age: 68 Year
  Sex: Female
  Weight: 78.75 kg

DRUGS (17)
  1. OPTIMIZED FOLATE [Concomitant]
  2. GLUTATHIONE CYSTEINE AND C [Concomitant]
  3. URISTATIN [Concomitant]
  4. FLAX OIL [Concomitant]
  5. COMFORT MAX [Concomitant]
  6. MULTI VITAMIN [Concomitant]
     Active Substance: VITAMINS
  7. COENZYME Q10 [Concomitant]
     Active Substance: UBIDECARENONE
  8. VITAMIN B COMPLEX [Concomitant]
     Active Substance: CYANOCOBALAMIN\DEXPANTHENOL\NIACINAMIDE\PYRIDOXINE HYDROCHLORIDE\RIBOFLAVIN 5^-PHOSPHATE SODIUM\THIAMINE HYDROCHLORIDE\VITAMIN B COMPLEX
  9. VITAMIN D3 [Concomitant]
     Active Substance: CHOLECALCIFEROL
  10. POTASSIUM [Concomitant]
     Active Substance: POTASSIUM
  11. MAGNESIUM [Concomitant]
     Active Substance: MAGNESIUM
  12. LOW DOSE NALTREXONE [Concomitant]
     Active Substance: NALTREXONE
  13. R LIPOIC ACID [Concomitant]
  14. FCSIII [Concomitant]
  15. C PAP MACHINE [Concomitant]
  16. CIPROFLOXACN [Suspect]
     Active Substance: CIPROFLOXACIN
     Indication: URINARY TRACT INFECTION
     Dosage: ?          QUANTITY:1 TABLET(S);?
     Route: 048
     Dates: start: 20160605, end: 20160607
  17. FENUGREEK AND THYME [Concomitant]

REACTIONS (6)
  - Pain [None]
  - Joint swelling [None]
  - Neuropathy peripheral [None]
  - Autoimmune disorder [None]
  - Arthralgia [None]
  - Gait disturbance [None]

NARRATIVE: CASE EVENT DATE: 20160607
